FAERS Safety Report 25259372 (Version 1)
Quarter: 2025Q2

REPORT INFORMATION
  Report Type: Spontaneous
  Country: CN (occurrence: CN)
  Receive Date: 20250501
  Receipt Date: 20250501
  Transmission Date: 20250717
  Serious: Yes (Other)
  Sender: BAXTER
  Company Number: None

PATIENT
  Age: 48 Year
  Sex: Female
  Weight: 55.7 kg

DRUGS (13)
  1. CYCLOPHOSPHAMIDE [Suspect]
     Active Substance: CYCLOPHOSPHAMIDE
     Indication: Breast cancer female
     Dosage: 0.85 G, QD, THIRD CYCLE OF PREOPERATIVE CHEMOTHERAPY
     Route: 041
     Dates: start: 20250419, end: 20250419
  2. SODIUM CHLORIDE [Suspect]
     Active Substance: SODIUM CHLORIDE
     Route: 040
     Dates: start: 20250419
  3. SODIUM CHLORIDE [Suspect]
     Active Substance: SODIUM CHLORIDE
     Route: 040
     Dates: start: 202504
  4. SODIUM CHLORIDE [Suspect]
     Active Substance: SODIUM CHLORIDE
     Route: 040
     Dates: start: 20250420
  5. EPIRUBICIN [Suspect]
     Active Substance: EPIRUBICIN
     Indication: Breast cancer female
     Dosage: 140 MG, QD, THIRD CYCLE OF PREOPERATIVE CHEMOTHERAPY
     Route: 041
     Dates: start: 20250419, end: 20250419
  6. SODIUM CHLORIDE [Suspect]
     Active Substance: SODIUM CHLORIDE
     Indication: Breast cancer female
     Route: 041
     Dates: start: 20250419
  7. SODIUM CHLORIDE [Suspect]
     Active Substance: SODIUM CHLORIDE
     Indication: Gastrointestinal disorder prophylaxis
     Dosage: 100 ML, QD  (WITH CYCLOPHOSPHAMIDE)
     Route: 041
     Dates: start: 20250419, end: 20250419
  8. SODIUM CHLORIDE [Suspect]
     Active Substance: SODIUM CHLORIDE
     Dosage: 100 ML, QD (WITH EPIRUBICIN HYDROCHLORIDE)
     Route: 041
     Dates: start: 20250419, end: 20250419
  9. OMEPRAZOLE SODIUM [Concomitant]
     Active Substance: OMEPRAZOLE SODIUM
     Indication: Gastrointestinal disorder prophylaxis
     Route: 041
     Dates: start: 20250419
  10. TROPISETRON HYDROCHLORIDE [Concomitant]
     Active Substance: TROPISETRON HYDROCHLORIDE
     Indication: Prophylaxis of nausea and vomiting
     Route: 040
     Dates: start: 20250419
  11. TROPISETRON HYDROCHLORIDE [Concomitant]
     Active Substance: TROPISETRON HYDROCHLORIDE
     Route: 040
     Dates: start: 202504
  12. TROPISETRON HYDROCHLORIDE [Concomitant]
     Active Substance: TROPISETRON HYDROCHLORIDE
     Route: 040
     Dates: start: 20250420
  13. DEXAMETHASONE SODIUM PHOSPHATE [Concomitant]
     Active Substance: DEXAMETHASONE SODIUM PHOSPHATE
     Indication: Prophylaxis of nausea and vomiting
     Route: 040
     Dates: start: 20250419

REACTIONS (5)
  - Eructation [Recovering/Resolving]
  - Hiccups [Recovering/Resolving]
  - Insomnia [Recovering/Resolving]
  - Haemoglobin decreased [Recovering/Resolving]
  - Red blood cell count decreased [Unknown]

NARRATIVE: CASE EVENT DATE: 20250421
